FAERS Safety Report 7919239-3 (Version None)
Quarter: 2011Q4

REPORT INFORMATION
  Report Type: 
  Country: None (occurrence: None)
  Receive Date: 20111114
  Receipt Date: 20111102
  Transmission Date: 20120403
  Serious: Yes (Life-Threatening, Hospitalization, Other)
  Sender: FDA-Public Use
  Company Number: ADR-2009-7569

PATIENT
  Age: 43 Year
  Sex: Male

DRUGS (1)
  1. LIORESAL [Suspect]
     Indication: MUSCLE SPASTICITY
     Dosage: 25,444.6 MCG, DAILY, IN

REACTIONS (8)
  - ACCIDENTAL OVERDOSE [None]
  - HYPOXIC-ISCHAEMIC ENCEPHALOPATHY [None]
  - LOWER RESPIRATORY TRACT INFECTION [None]
  - DEVICE COMPUTER ISSUE [None]
  - RESPIRATORY ARREST [None]
  - LOSS OF CONSCIOUSNESS [None]
  - CARDIAC ARREST [None]
  - CONVULSION [None]
